FAERS Safety Report 6928476-6 (Version None)
Quarter: 2010Q3

REPORT INFORMATION
  Report Type: 
  Country: None (occurrence: None)
  Receive Date: 20100806
  Receipt Date: 20100806
  Transmission Date: 20110219
  Serious: No
  Sender: FDA-Public Use
  Company Number: 2009-00288

PATIENT
  Age: 46 Year
  Sex: Female
  Weight: 74.8435 kg

DRUGS (4)
  1. ZICAM COLD REMEDY GEL SWABS [Suspect]
     Dosage: SPORADIC X 3 MONTHS
     Dates: start: 20090301, end: 20090601
  2. GEODON [Concomitant]
  3. PROZAC [Concomitant]
  4. SEROQUEL [Concomitant]

REACTIONS (1)
  - ANOSMIA [None]
